FAERS Safety Report 6433661-6 (Version None)
Quarter: 2009Q4

REPORT INFORMATION
  Report Type: 
  Country: None (occurrence: None)
  Receive Date: 20091106
  Receipt Date: 20091106
  Transmission Date: 20100525
  Serious: Yes (Hospitalization)
  Sender: FDA-Public Use
  Company Number: None

PATIENT
  Age: 47 Year
  Sex: Male

DRUGS (2)
  1. LACTULOSE [Suspect]
     Indication: HEPATITIS ALCOHOLIC
     Dosage: 15 ML BID PO
     Route: 048
     Dates: start: 20090507, end: 20090518
  2. FUROSEMIDE [Suspect]
     Indication: ASCITES
     Dosage: 40 MG AM PO
     Route: 048
     Dates: start: 20090507, end: 20090518

REACTIONS (4)
  - BLOOD CREATININE INCREASED [None]
  - BLOOD UREA INCREASED [None]
  - RENAL IMPAIRMENT [None]
  - WEIGHT DECREASED [None]
